FAERS Safety Report 12204780 (Version 1)
Quarter: 2016Q1

REPORT INFORMATION
  Report Type: Spontaneous
  Country: US (occurrence: US)
  Receive Date: 20160323
  Receipt Date: 20160323
  Transmission Date: 20160526
  Serious: Yes (Hospitalization)
  Sender: FDA-Public Use
  Company Number: US-ACTAVIS-2016-05690

PATIENT
  Age: 57 Year
  Sex: Male

DRUGS (1)
  1. CLOZAPINE (ACTAVIS LABORATORIES FL, INC.) [Suspect]
     Active Substance: CLOZAPINE
     Indication: PRODUCT USED FOR UNKNOWN INDICATION
     Dosage: UNKNOWN
     Route: 048

REACTIONS (1)
  - Neutrophil count increased [Unknown]

NARRATIVE: CASE EVENT DATE: 20160304
